FAERS Safety Report 6565932-7 (Version None)
Quarter: 2010Q1

REPORT INFORMATION
  Report Type: 
  Country: None (occurrence: None)
  Receive Date: 20100129
  Receipt Date: 20100129
  Transmission Date: 20100710
  Serious: No
  Sender: FDA-Public Use
  Company Number: None

PATIENT
  Age: 48 Year
  Sex: Female
  Weight: 68.9467 kg

DRUGS (2)
  1. KLONOPIN [Suspect]
     Indication: POST-TRAUMATIC STRESS DISORDER
     Dosage: 1 MG QAM PO
     Route: 048
  2. KLONOPIN [Suspect]
     Dosage: 0.5 MG QID PO
     Route: 048

REACTIONS (2)
  - NEURALGIA [None]
  - PRODUCT SUBSTITUTION ISSUE [None]
